FAERS Safety Report 5333658-3 (Version None)
Quarter: 2007Q2

REPORT INFORMATION
  Report Type: 
  Country: None (occurrence: None)
  Receive Date: 20070524
  Receipt Date: 20070522
  Transmission Date: 20071010
  Serious: Yes (Other)
  Sender: FDA-Public Use
  Company Number: A0646992A

PATIENT
  Age: 76 Year
  Sex: Male

DRUGS (1)
  1. ADVAIR DISKUS 100/50 [Suspect]
     Indication: PNEUMONIA
     Dosage: 1PUFF TWICE PER DAY
     Route: 055
     Dates: start: 20070201

REACTIONS (4)
  - DEVICE INEFFECTIVE [None]
  - DRUG INEFFECTIVE [None]
  - PHARMACEUTICAL PRODUCT COMPLAINT [None]
  - PNEUMONIA [None]
